FAERS Safety Report 5217106-X (Version None)
Quarter: 2007Q1

REPORT INFORMATION
  Report Type: 
  Country: None (occurrence: None)
  Receive Date: 20070119
  Receipt Date: 20070111
  Transmission Date: 20070707
  Serious: Yes (Hospitalization)
  Sender: FDA-Public Use
  Company Number: 2007AL000155

PATIENT
  Age: 77 Year
  Sex: Female

DRUGS (18)
  1. METOCLOPRAMIDE [Suspect]
     Indication: NAUSEA
     Dosage: 10 MG; TID; PO
     Route: 048
     Dates: start: 20061024, end: 20061027
  2. BUPRENORPHINE HCL [Concomitant]
  3. PARACETAMOL [Concomitant]
  4. CLOTRIMAZOLE [Concomitant]
  5. HYDROCORTISONE [Concomitant]
  6. CITALOPRAM [Concomitant]
  7. ASPIRIN [Concomitant]
  8. OMEPRAZOLE [Concomitant]
  9. LEVOTHYROXINE SODIUM [Concomitant]
  10. RISEDRONATE SODIUM [Concomitant]
  11. TRAMADOL HCL [Concomitant]
  12. PERINDOPRIL ERBUMINE [Concomitant]
  13. SIMVASTATIN [Concomitant]
  14. ATENOLOL [Concomitant]
  15. SENNA [Concomitant]
  16. GAVISCON [Concomitant]
  17. CALCICHEW [Concomitant]
  18. METANIUM [Concomitant]

REACTIONS (3)
  - HEMIPARESIS [None]
  - HYPERTONIA [None]
  - IMMOBILE [None]
